FAERS Safety Report 21821975 (Version 4)
Quarter: 2023Q2

REPORT INFORMATION
  Report Type: Spontaneous
  Country: US (occurrence: US)
  Receive Date: 20230105
  Receipt Date: 20230421
  Transmission Date: 20230721
  Serious: No
  Sender: FDA-Public Use
  Company Number: US-002147023-NVSC2023US001895

PATIENT
  Sex: Female

DRUGS (1)
  1. COSENTYX [Suspect]
     Active Substance: SECUKINUMAB
     Indication: Product used for unknown indication
     Dosage: 300 MG, QMO (150 MG 2 PENS) (FOR THE PAST 2-3 YEARS)
     Route: 065

REACTIONS (4)
  - Animal attack [Unknown]
  - Oesophageal spasm [Unknown]
  - Incorrect dose administered by device [Unknown]
  - Device malfunction [Unknown]
